FAERS Safety Report 20121423 (Version 1)
Quarter: 2021Q4

REPORT INFORMATION
  Report Type: Spontaneous
  Country: US (occurrence: None)
  Receive Date: 20211125
  Receipt Date: 20211125
  Transmission Date: 20220304
  Serious: Yes (Hospitalization)
  Sender: FDA-Public Use
  Company Number: None

PATIENT
  Sex: Female
  Weight: 55.3 kg

DRUGS (1)
  1. FEMARA [Suspect]
     Active Substance: LETROZOLE
     Indication: Product used for unknown indication
     Dates: start: 20210614, end: 20211107

REACTIONS (9)
  - Stoma site haemorrhage [None]
  - Abdominal pain [None]
  - Wound drainage [None]
  - Post procedural complication [None]
  - Enterocutaneous fistula [None]
  - Postoperative abscess [None]
  - Abdominal infection [None]
  - Incision site discharge [None]
  - Incision site impaired healing [None]

NARRATIVE: CASE EVENT DATE: 20211108
